FAERS Safety Report 6735652-4 (Version None)
Quarter: 2010Q2

REPORT INFORMATION
  Report Type: 
  Country: None (occurrence: None)
  Receive Date: 20100521
  Receipt Date: 20100510
  Transmission Date: 20101027
  Serious: Yes (Other)
  Sender: FDA-Public Use
  Company Number: PHHY2010GB04645

PATIENT
  Sex: Male

DRUGS (4)
  1. CLOZARIL [Suspect]
     Indication: SCHIZOPHRENIA
     Dosage: 300MG/DAY
     Route: 048
     Dates: start: 20090916
  2. NEUPOGEN [Concomitant]
  3. FILGRASTIM [Concomitant]
     Indication: NEUTROPENIA
     Dosage: 3 TIMES/WEEK
  4. FILGRASTIM [Concomitant]
     Dosage: ONCE/WEEK

REACTIONS (4)
  - H1N1 INFLUENZA [None]
  - INFLUENZA LIKE ILLNESS [None]
  - PYREXIA [None]
  - WHITE BLOOD CELL COUNT INCREASED [None]
